FAERS Safety Report 7957688-8 (Version None)
Quarter: 2011Q4

REPORT INFORMATION
  Report Type: 
  Country: None (occurrence: None)
  Receive Date: 20111205
  Receipt Date: 20111128
  Transmission Date: 20120403
  Serious: Yes (Hospitalization, Other)
  Sender: FDA-Public Use
  Company Number: US-BAYER-200943569NA

PATIENT
  Age: 48 Year
  Sex: Male
  Weight: 152 kg

DRUGS (17)
  1. PROTAMINE SULFATE [Concomitant]
     Dosage: UNK
     Route: 042
     Dates: start: 20060121, end: 20060121
  2. TRASYLOL [Suspect]
     Indication: CORONARY ARTERY BYPASS
     Dosage: LOADING DOSE 100ML FOLLOWED BY 50ML/HR
     Route: 042
     Dates: start: 20060121, end: 20060121
  3. LASIX [Concomitant]
     Indication: SWELLING
     Dosage: UNK
     Route: 048
     Dates: start: 19960101
  4. ENOXAPARIN [Concomitant]
     Dosage: INJECTED
     Dates: start: 20060101
  5. LISINOPRIL [Concomitant]
  6. LASIX [Concomitant]
     Dosage: UNK
     Route: 048
     Dates: start: 20050101
  7. CARVEDILOL [Concomitant]
     Dosage: UNK
     Route: 048
     Dates: start: 20060101
  8. SIMVASTATIN [Concomitant]
     Dosage: UNK
     Route: 048
     Dates: start: 20060101
  9. ALTACE [Concomitant]
     Indication: HYPERTENSION
     Dosage: UNK
     Route: 048
     Dates: start: 20000101
  10. ACETYLSALICYLIC ACID SRT [Concomitant]
     Dosage: UNK
     Route: 048
     Dates: start: 20060101
  11. NITROGLYCERIN [Concomitant]
     Dosage: UNK
     Route: 042
     Dates: start: 20060121
  12. HUMULIN [INSULIN HUMAN] [Concomitant]
     Dosage: INJECTED
     Dates: start: 20050101
  13. HUMULIN [INSULIN HUMAN] [Concomitant]
     Dosage: UNK
     Route: 042
     Dates: start: 20060121
  14. VASOPRESSIN [VASOPRESSIN] [Concomitant]
     Dosage: UNK
     Route: 042
     Dates: start: 20060121
  15. DOBUTAMINE HCL [Concomitant]
     Dosage: UNK
     Route: 042
     Dates: start: 20060121
  16. HEPARIN [Concomitant]
     Dosage: UNK
     Route: 042
     Dates: start: 20060121
  17. DOPAMINE HCL [Concomitant]
     Dosage: UNK
     Route: 042
     Dates: start: 20060121

REACTIONS (6)
  - RENAL FAILURE [None]
  - INJURY [None]
  - EMOTIONAL DISTRESS [None]
  - RENAL FAILURE ACUTE [None]
  - PAIN [None]
  - UNEVALUABLE EVENT [None]
